FAERS Safety Report 11836344 (Version 2)
Quarter: 2015Q4

REPORT INFORMATION
  Report Type: Spontaneous
  Country: IT (occurrence: IT)
  Receive Date: 20151215
  Receipt Date: 20151222
  Transmission Date: 20160305
  Serious: Yes (Hospitalization, Other)
  Sender: FDA-Public Use
  Company Number: IT-PFIZER INC-2015442291

PATIENT
  Age: 80 Year
  Sex: Female

DRUGS (10)
  1. TRINIPLAS [Concomitant]
     Active Substance: NITROGLYCERIN
     Dosage: UNK
  2. PROVISACOR [Concomitant]
     Active Substance: ROSUVASTATIN
     Dosage: UNK
  3. ESKIM [Concomitant]
     Active Substance: OMEGA-3 FATTY ACIDS
     Dosage: UNK
  4. CARDIOASPIRIN [Concomitant]
     Active Substance: ASPIRIN
     Dosage: UNK
  5. RANEXA [Interacting]
     Active Substance: RANOLAZINE
     Dosage: 750 MG, 1X/DAY (2 DOSAGE FORM)
     Route: 048
  6. PANTOPRAZOLE [Concomitant]
     Active Substance: PANTOPRAZOLE SODIUM
     Dosage: UNK
  7. NORVASC [Concomitant]
     Active Substance: AMLODIPINE BESYLATE
     Dosage: UNK
  8. CORLENTOR [Interacting]
     Active Substance: IVABRADINE HYDROCHLORIDE
     Dosage: 2.5 MG, 1X/DAY
     Route: 048
  9. CORDARONE [Suspect]
     Active Substance: AMIODARONE HYDROCHLORIDE
     Dosage: 200 MG, 1X/DAY (1 DOSAGE FORM)
     Route: 048
  10. LASIX [Concomitant]
     Active Substance: FUROSEMIDE
     Dosage: UNK

REACTIONS (5)
  - Pleural effusion [Unknown]
  - Electrocardiogram QT prolonged [Unknown]
  - Cardiac arrest [Not Recovered/Not Resolved]
  - Malaise [Unknown]
  - Drug interaction [Unknown]

NARRATIVE: CASE EVENT DATE: 20151125
